FAERS Safety Report 5778114-3 (Version None)
Quarter: 2008Q2

REPORT INFORMATION
  Report Type: 
  Country: None (occurrence: None)
  Receive Date: 20080617
  Receipt Date: 20080617
  Transmission Date: 20081010
  Serious: Yes (Hospitalization)
  Sender: FDA-Public Use
  Company Number: None

PATIENT
  Sex: Female
  Weight: 140.6151 kg

DRUGS (8)
  1. JANUMET [Suspect]
     Indication: DIABETES MELLITUS
     Dosage: 50/1000 MG TWICE PER DAY PO
     Route: 048
     Dates: start: 20080526, end: 20080531
  2. SYNTHROID [Concomitant]
  3. PRAVASTATIN [Concomitant]
  4. ENALAPRIL MALEATE [Concomitant]
  5. CALCITRIOL [Concomitant]
  6. WARFARIN SODIUM [Concomitant]
  7. HUMULIN N [Concomitant]
  8. HUMALOG [Concomitant]

REACTIONS (5)
  - DIABETES MELLITUS INADEQUATE CONTROL [None]
  - ERYTHEMA [None]
  - PAIN [None]
  - SKIN EXFOLIATION [None]
  - URINARY TRACT INFECTION [None]
